FAERS Safety Report 10077512 (Version 2)
Quarter: 2014Q2

REPORT INFORMATION
  Report Type: Spontaneous
  Country: US (occurrence: US)
  Receive Date: 20140414
  Receipt Date: 20140414
  Transmission Date: 20141212
  Serious: No
  Sender: FDA-Public Use
  Company Number: US-BANPHARM-20131641

PATIENT
  Age: 54 Year
  Sex: Female
  Weight: 81.65 kg

DRUGS (4)
  1. ALEVE LIQUID GELS 220 MG [Suspect]
     Indication: PAIN
     Dosage: 1 DF, PRN,
     Route: 048
     Dates: start: 2000
  2. ALEVE GEL CAPS [Suspect]
     Dosage: 1 DF, PRN,
     Route: 048
     Dates: start: 2000
  3. OMEGA FISH OIL [Concomitant]
  4. VITAMIN D [Concomitant]

REACTIONS (2)
  - Gastric haemorrhage [Recovered/Resolved]
  - Abdominal discomfort [Recovered/Resolved]
